FAERS Safety Report 21298100 (Version 5)
Quarter: 2023Q1

REPORT INFORMATION
  Report Type: Report from Study
  Country: CA (occurrence: CA)
  Receive Date: 20220906
  Receipt Date: 20230207
  Transmission Date: 20230418
  Serious: Yes (Hospitalization, Other)
  Sender: FDA-Public Use
  Company Number: CA-TAKEDA-2022TUS045046

PATIENT
  Age: 78 Year
  Sex: Female

DRUGS (8)
  1. VEDOLIZUMAB [Suspect]
     Active Substance: VEDOLIZUMAB
     Indication: Crohn^s disease
     Dosage: 300 MILLIGRAM
     Route: 042
     Dates: start: 20170306
  2. VEDOLIZUMAB [Suspect]
     Active Substance: VEDOLIZUMAB
     Dosage: 300 MILLIGRAM, Q4WEEKS
     Route: 042
     Dates: start: 20180516
  3. VEDOLIZUMAB [Suspect]
     Active Substance: VEDOLIZUMAB
     Dosage: 300 MILLIGRAM, Q4WEEKS
     Route: 042
  4. VEDOLIZUMAB [Suspect]
     Active Substance: VEDOLIZUMAB
     Dosage: 300 MILLIGRAM, Q4WEEKS
     Route: 042
  5. VEDOLIZUMAB [Suspect]
     Active Substance: VEDOLIZUMAB
     Dosage: 300 MILLIGRAM, Q4WEEKS
     Route: 042
  6. VEDOLIZUMAB [Suspect]
     Active Substance: VEDOLIZUMAB
     Dosage: 300 MILLIGRAM, Q4WEEKS
     Route: 042
  7. Lax [Concomitant]
     Dosage: UNK UNK, QD
  8. FERROUS SULFATE [Concomitant]
     Active Substance: FERROUS SULFATE
     Dosage: 300 MILLIGRAM, BID
     Route: 048

REACTIONS (7)
  - Renal cancer [Unknown]
  - Contusion [Unknown]
  - Malaise [Unknown]
  - Poor venous access [Unknown]
  - Fatigue [Unknown]
  - Pollakiuria [Unknown]
  - Off label use [Unknown]

NARRATIVE: CASE EVENT DATE: 20180516
